FAERS Safety Report 12347510 (Version 5)
Quarter: 2016Q2

REPORT INFORMATION
  Report Type: Spontaneous
  Country: US (occurrence: US)
  Receive Date: 20160509
  Receipt Date: 20160629
  Transmission Date: 20160815
  Serious: Yes (Hospitalization)
  Sender: FDA-Public Use
  Company Number: US-ACTELION-A-US2016-135561

PATIENT
  Age: 64 Year
  Sex: Male

DRUGS (6)
  1. FUROSEMIDE. [Concomitant]
     Active Substance: FUROSEMIDE
     Dosage: 80 MG, QD
  2. VELETRI [Suspect]
     Active Substance: EPOPROSTENOL
     Indication: PULMONARY ARTERIAL HYPERTENSION
     Dosage: 15 NG/KG, PER MIN
     Route: 042
     Dates: start: 20160414
  3. NIFEDIPINE. [Concomitant]
     Active Substance: NIFEDIPINE
  4. COUMADIN [Concomitant]
     Active Substance: WARFARIN SODIUM
  5. VIAGRA [Concomitant]
     Active Substance: SILDENAFIL CITRATE
  6. VELETRI [Suspect]
     Active Substance: EPOPROSTENOL
     Dosage: 31 NG/KG, PER MIN
     Route: 042
     Dates: start: 20160413

REACTIONS (8)
  - Abdominal distension [Unknown]
  - Weight decreased [Unknown]
  - Ascites [Unknown]
  - Pain in jaw [Unknown]
  - Headache [Unknown]
  - Fluid overload [Recovering/Resolving]
  - Constipation [Unknown]
  - Diarrhoea [Unknown]
